FAERS Safety Report 10525286 (Version 1)
Quarter: 2014Q4

REPORT INFORMATION
  Report Type: Spontaneous
  Country: NO (occurrence: None)
  Receive Date: 20141015
  Receipt Date: 20141015
  Transmission Date: 20150528
  Serious: Yes (Other)
  Sender: FDA-Public Use
  Company Number: NO2014GSK000813

PATIENT
  Age: 49 Year
  Sex: Male

DRUGS (2)
  1. DOLUTEGRAVIR (DOLUTEGRAVIR) UNKNOWN [Suspect]
     Active Substance: DOLUTEGRAVIR
     Indication: HIV INFECTION
  2. TRUVADA (EMTRICITABINE + TENOFOVIR DISOPROXIL FUMARATE) [Concomitant]

REACTIONS (6)
  - Polyneuropathy [None]
  - Diarrhoea [None]
  - Migraine [None]
  - Seizure [None]
  - Dysgeusia [None]
  - Nausea [None]
